FAERS Safety Report 4622788-7 (Version None)
Quarter: 2005Q1

REPORT INFORMATION
  Report Type: 
  Country: None (occurrence: None)
  Receive Date: 20050328
  Receipt Date: 20050328
  Transmission Date: 20050727
  Serious: Yes (Death)
  Sender: FDA-Public Use
  Company Number: None

PATIENT
  Age: 61 Year
  Sex: Male
  Weight: 81.6475 kg

DRUGS (3)
  1. VIOXX [Suspect]
     Indication: ARTHRITIS
     Dosage: ONE       ONCE A DAY
  2. CELEBREX [Suspect]
     Indication: ARTHRITIS
     Dosage: ONE     ONCE A DAY
  3. BEXTRA [Suspect]

REACTIONS (2)
  - HIP ARTHROPLASTY [None]
  - MYOCARDIAL INFARCTION [None]
